FAERS Safety Report 6870912-8 (Version None)
Quarter: 2010Q2

REPORT INFORMATION
  Report Type: 
  Country: None (occurrence: None)
  Receive Date: 20100610
  Receipt Date: 20100319
  Transmission Date: 20101027
  Serious: No
  Sender: FDA-Public Use
  Company Number: 2010SP017431

PATIENT
  Sex: Male

DRUGS (5)
  1. SAPHRIS [Suspect]
     Indication: SCHIZOPHRENIFORM DISORDER
     Dosage: 10 MG;BID;PO
     Route: 048
     Dates: start: 20091215, end: 20091216
  2. CITALOPRAM HYDROBROMIDE [Concomitant]
  3. PROPRANOLOL [Concomitant]
  4. TRAZODONE HCL [Concomitant]
  5. RISPERDAL CONSTRA [Concomitant]

REACTIONS (5)
  - HYPERSENSITIVITY [None]
  - INCORRECT ROUTE OF DRUG ADMINISTRATION [None]
  - LIP SWELLING [None]
  - OEDEMA PERIPHERAL [None]
  - RASH GENERALISED [None]
